FAERS Safety Report 4356295-6 (Version None)
Quarter: 2004Q2

REPORT INFORMATION
  Report Type: 
  Country: None (occurrence: None)
  Receive Date: 20040510
  Receipt Date: 20040510
  Transmission Date: 20050107
  Serious: Yes (Death)
  Sender: FDA-Public Use
  Company Number: None

PATIENT
  Age: 45 Year
  Sex: Male

DRUGS (2)
  1. LISTERINE (EUCALYPTOL; MENTHOL; METHYL SALICYLATE; THYMOL) [Suspect]
     Dosage: ORAL
     Route: 048
     Dates: end: 20000501
  2. ETHANOL (ETHANOL) [Suspect]

REACTIONS (3)
  - COMPLETED SUICIDE [None]
  - INTENTIONAL MISUSE [None]
  - TOXICOLOGIC TEST ABNORMAL [None]
